FAERS Safety Report 18842896 (Version 1)
Quarter: 2021Q1

REPORT INFORMATION
  Report Type: Spontaneous
  Country: AR (occurrence: AR)
  Receive Date: 20210204
  Receipt Date: 20210204
  Transmission Date: 20210419
  Serious: Yes (Hospitalization, Other)
  Sender: FDA-Public Use
  Company Number: AR-ACCORD-216620

PATIENT
  Age: 48 Year
  Sex: Female

DRUGS (1)
  1. MITOMYCIN. [Suspect]
     Active Substance: MITOMYCIN
     Indication: PRODUCT USED FOR UNKNOWN INDICATION
     Dosage: SINGLE INSTILLATION

REACTIONS (3)
  - Hydronephrosis [Recovered/Resolved]
  - Pudendal canal syndrome [Recovered/Resolved]
  - Extravasation [Recovered/Resolved]
